FAERS Safety Report 16230284 (Version 2)
Quarter: 2019Q2

REPORT INFORMATION
  Report Type: Spontaneous
  Country: US (occurrence: US)
  Receive Date: 20190423
  Receipt Date: 20190603
  Transmission Date: 20190711
  Serious: Yes (Hospitalization)
  Sender: FDA-Public Use
  Company Number: US-ASTRAZENECA-2019SE58642

PATIENT
  Age: 26462 Day
  Sex: Male
  Weight: 114.3 kg

DRUGS (1)
  1. BYDUREON [Suspect]
     Active Substance: EXENATIDE
     Indication: TYPE 2 DIABETES MELLITUS
     Route: 058

REACTIONS (6)
  - Injection site discomfort [Unknown]
  - Circumstance or information capable of leading to device use error [Unknown]
  - Device malfunction [Unknown]
  - Injection site pain [Unknown]
  - Coronary artery stenosis [Recovering/Resolving]
  - Injection site extravasation [Unknown]

NARRATIVE: CASE EVENT DATE: 20190220
